FAERS Safety Report 25618467 (Version 2)
Quarter: 2025Q3

REPORT INFORMATION
  Report Type: Spontaneous
  Country: CR (occurrence: CR)
  Receive Date: 20250729
  Receipt Date: 20250807
  Transmission Date: 20251020
  Serious: Yes (Other)
  Sender: SANDOZ
  Company Number: CR-SANDOZ-SDZ2025CR052293

PATIENT
  Age: 57 Year
  Sex: Male
  Weight: 65 kg

DRUGS (1)
  1. HYRIMOZ [Suspect]
     Active Substance: ADALIMUMAB-ADAZ
     Indication: Spondyloarthropathy
     Dosage: 40 MG, Q2W
     Route: 058
     Dates: start: 20250219

REACTIONS (1)
  - Intervertebral disc operation [Recovered/Resolved]

NARRATIVE: CASE EVENT DATE: 20250707
